FAERS Safety Report 21087850 (Version 1)
Quarter: 2022Q3

REPORT INFORMATION
  Report Type: Spontaneous
  Country: US (occurrence: None)
  Receive Date: 20220714
  Receipt Date: 20220714
  Transmission Date: 20221027
  Serious: Yes (Death)
  Sender: FDA-Public Use
  Company Number: None

PATIENT
  Age: 79 Year
  Sex: Male
  Weight: 102.06 kg

DRUGS (10)
  1. ABIRATERONE [Suspect]
     Active Substance: ABIRATERONE
     Dosage: FREQUENCY : DAILY;?
     Route: 048
     Dates: start: 20220421
  2. ELIGARD [Concomitant]
     Active Substance: LEUPROLIDE ACETATE
  3. FLUNISOLIDE [Concomitant]
     Active Substance: FLUNISOLIDE
  4. FUROSEMIDE [Concomitant]
     Active Substance: FUROSEMIDE
  5. LISINOPRIL [Concomitant]
  6. METOPROLOL [Concomitant]
  7. PREDNISONE [Concomitant]
     Active Substance: PREDNISONE
  8. TAMSULOSIN [Concomitant]
     Active Substance: TAMSULOSIN
  9. VIMPAT [Concomitant]
     Active Substance: LACOSAMIDE
  10. VITAMIN D3 [Concomitant]
     Active Substance: CHOLECALCIFEROL

REACTIONS (1)
  - Death [None]
